FAERS Safety Report 15186946 (Version 2)
Quarter: 2019Q1

REPORT INFORMATION
  Report Type: Report from Study
  Country: US (occurrence: US)
  Receive Date: 20180723
  Receipt Date: 20190130
  Transmission Date: 20190417
  Serious: No
  Sender: FDA-Public Use
  Company Number: US-EXELIXIS-CABO-18013977

PATIENT
  Age: 69 Year
  Sex: Male
  Weight: 79.37 kg

DRUGS (5)
  1. LISINOPRIL. [Concomitant]
     Active Substance: LISINOPRIL
  2. CABOMETYX [Suspect]
     Active Substance: CABOZANTINIB S-MALATE
     Indication: RENAL CELL CARCINOMA
     Dosage: 60 MG, QD
     Route: 048
     Dates: start: 20171208
  3. PRAVASTATIN. [Concomitant]
     Active Substance: PRAVASTATIN
  4. TYLENOL [Concomitant]
     Active Substance: ACETAMINOPHEN
  5. ZOLPIDEM TARTRATE. [Concomitant]
     Active Substance: ZOLPIDEM TARTRATE

REACTIONS (12)
  - Blister [Unknown]
  - Stomatitis [Unknown]
  - Noninfective gingivitis [Unknown]
  - Decreased appetite [Unknown]
  - Dysgeusia [Recovering/Resolving]
  - Fatigue [Unknown]
  - Dry mouth [Unknown]
  - Dry throat [Unknown]
  - Diarrhoea [Unknown]
  - Abdominal discomfort [Recovering/Resolving]
  - Dysphonia [Unknown]
  - Weight decreased [Unknown]

NARRATIVE: CASE EVENT DATE: 201712
